FAERS Safety Report 6035796-9 (Version None)
Quarter: 2009Q1

REPORT INFORMATION
  Report Type: 
  Country: None (occurrence: None)
  Receive Date: 20090109
  Receipt Date: 20081223
  Transmission Date: 20090719
  Serious: Yes (Death)
  Sender: FDA-Public Use
  Company Number: 000048

PATIENT
  Age: 53 Year
  Sex: Male

DRUGS (3)
  1. NIFEDIPINE [Suspect]
  2. HYDROCODONE BITARTRATE + ACETAMINOPHEN [Suspect]
  3. GABAPENTIN [Suspect]

REACTIONS (1)
  - COMPLETED SUICIDE [None]
